FAERS Safety Report 20870446 (Version 1)
Quarter: 2022Q2

REPORT INFORMATION
  Report Type: Spontaneous
  Country: ES (occurrence: ES)
  Receive Date: 20220525
  Receipt Date: 20220525
  Transmission Date: 20220721
  Serious: Yes (Other)
  Sender: FDA-Public Use
  Company Number: None

PATIENT
  Age: 64 Year
  Sex: Female
  Weight: 79 kg

DRUGS (9)
  1. TECHNETIUM TC-99M SESTAMIBI [Suspect]
     Active Substance: TECHNETIUM TC-99M SESTAMIBI
     Indication: Hyperparathyroidism primary
     Dosage: DOSIS ?NICA DE 740 MBQ
     Route: 042
     Dates: start: 20210422, end: 20210422
  2. ULTRA-TECHNEKOW FM [Suspect]
     Active Substance: TECHNETIUM TC-99M SODIUM PERTECHNETATE
     Indication: Hyperparathyroidism primary
     Dosage: 740 MBQ
     Route: 042
     Dates: start: 20210422, end: 20210422
  3. Omeprazole 20 [Concomitant]
     Indication: Product used for unknown indication
     Route: 065
  4. Valsartan 300 [Concomitant]
     Indication: Product used for unknown indication
     Route: 065
  5. Torasemida 2.5 [Concomitant]
     Indication: Product used for unknown indication
     Route: 065
  6. Alopurinol 100 [Concomitant]
     Indication: Product used for unknown indication
     Route: 065
  7. ASPIRIN [Concomitant]
     Active Substance: ASPIRIN
     Indication: Product used for unknown indication
     Route: 065
  8. Lercanidipine 20 [Concomitant]
     Indication: Product used for unknown indication
     Route: 065
  9. FENOFIBRATE\PRAVASTATIN [Concomitant]
     Active Substance: FENOFIBRATE\PRAVASTATIN
     Indication: Product used for unknown indication
     Route: 065

REACTIONS (4)
  - Depressed level of consciousness [Recovered/Resolved]
  - Oral pruritus [Recovered/Resolved]
  - Dry mouth [Recovered/Resolved]
  - Dizziness [Recovered/Resolved]

NARRATIVE: CASE EVENT DATE: 20210422
